FAERS Safety Report 5810328-6 (Version None)
Quarter: 2008Q3

REPORT INFORMATION
  Report Type: 
  Country: None (occurrence: None)
  Receive Date: 20080715
  Receipt Date: 20080415
  Transmission Date: 20090109
  Serious: No
  Sender: FDA-Public Use
  Company Number: A0722858A

PATIENT
  Age: 65 Year
  Sex: Female

DRUGS (2)
  1. SUMATRIPTAN SUCCINATE [Suspect]
     Indication: MIGRAINE
  2. MIGRAINE MEDICATION [Concomitant]
     Indication: MIGRAINE PROPHYLAXIS

REACTIONS (1)
  - DRUG INEFFECTIVE [None]
